FAERS Safety Report 9755778 (Version 1)
Quarter: 2013Q4

REPORT INFORMATION
  Report Type: Spontaneous
  Country: US (occurrence: US)
  Receive Date: 20131213
  Receipt Date: 20131213
  Transmission Date: 20140711
  Serious: No
  Sender: FDA-Public Use
  Company Number: US-GLAXOSMITHKLINE-A1024098A

PATIENT
  Age: 37 Year
  Sex: Male

DRUGS (2)
  1. NICODERM CQ CLEAR 21MG [Suspect]
     Indication: EX-TOBACCO USER
     Dates: start: 201304, end: 201305
  2. NICODERM CQ CLEAR 14MG [Suspect]
     Indication: EX-TOBACCO USER
     Dates: end: 201305

REACTIONS (4)
  - Application site swelling [Not Recovered/Not Resolved]
  - Application site erythema [Not Recovered/Not Resolved]
  - Pruritus generalised [Not Recovered/Not Resolved]
  - Drug administration error [Not Recovered/Not Resolved]
